FAERS Safety Report 7331636-6 (Version None)
Quarter: 2011Q1

REPORT INFORMATION
  Report Type: 
  Country: None (occurrence: None)
  Receive Date: 20110228
  Receipt Date: 20110228
  Transmission Date: 20110831
  Serious: Yes (Hospitalization, Disabling)
  Sender: FDA-Public Use
  Company Number: None

PATIENT
  Age: 62 Year
  Sex: Male
  Weight: 81 kg

DRUGS (1)
  1. NAFCILLIN [Suspect]
     Indication: ARTHRITIS BACTERIAL
     Dosage: 2 GM UD IV
     Route: 042
     Dates: start: 20101022, end: 20101025

REACTIONS (3)
  - TUBULOINTERSTITIAL NEPHRITIS [None]
  - HAEMODIALYSIS [None]
  - RENAL FAILURE ACUTE [None]
